FAERS Safety Report 10214471 (Version 5)
Quarter: 2015Q2

REPORT INFORMATION
  Report Type: Report from Study
  Country: US (occurrence: US)
  Receive Date: 20140603
  Receipt Date: 20150403
  Transmission Date: 20150821
  Serious: Yes (Hospitalization, Disabling, Other)
  Sender: FDA-Public Use
  Company Number: US-SA-2014SA053910

PATIENT
  Age: 73 Year
  Sex: Male

DRUGS (3)
  1. AUBAGIO [Suspect]
     Active Substance: TERIFLUNOMIDE
     Indication: MULTIPLE SCLEROSIS
     Route: 048
     Dates: start: 20140429, end: 20150201
  2. AUBAGIO [Suspect]
     Active Substance: TERIFLUNOMIDE
     Indication: MULTIPLE SCLEROSIS
     Route: 048
     Dates: start: 20140406
  3. AUBAGIO [Suspect]
     Active Substance: TERIFLUNOMIDE
     Indication: MULTIPLE SCLEROSIS
     Route: 048
     Dates: start: 20140321

REACTIONS (12)
  - Gastrointestinal haemorrhage [Unknown]
  - Asthenia [Unknown]
  - Amnesia [Unknown]
  - Multiple sclerosis [Unknown]
  - Disability [Unknown]
  - Wheelchair user [Unknown]
  - Abasia [Not Recovered/Not Resolved]
  - Influenza like illness [Unknown]
  - Drug dose omission [Unknown]
  - Muscle spasms [Not Recovered/Not Resolved]
  - Abdominal discomfort [Unknown]
  - Feeling abnormal [Unknown]

NARRATIVE: CASE EVENT DATE: 201404
